FAERS Safety Report 5005536-0 (Version None)
Quarter: 2006Q2

REPORT INFORMATION
  Report Type: 
  Country: None (occurrence: None)
  Receive Date: 20060518
  Receipt Date: 20060418
  Transmission Date: 20061013
  Serious: Yes (Other)
  Sender: FDA-Public Use
  Company Number: AU-ROCHE-444746

PATIENT
  Age: 47 Year
  Sex: Male

DRUGS (3)
  1. VALIUM [Suspect]
     Indication: DEPRESSION
     Dosage: PRESCRIBED FOR POST TRAUMATIC STRESS DISORDER/ DEPRESSION.
     Route: 065
     Dates: start: 19930615
  2. VALIUM [Suspect]
     Route: 065
     Dates: start: 19930615
  3. VALIUM [Suspect]
     Route: 065

REACTIONS (4)
  - ANXIETY [None]
  - ASTHMA [None]
  - DYSPNOEA [None]
  - INSOMNIA [None]
